FAERS Safety Report 22108721 (Version 1)
Quarter: 2023Q1

REPORT INFORMATION
  Report Type: Spontaneous
  Country: US (occurrence: None)
  Receive Date: 20230316
  Receipt Date: 20230316
  Transmission Date: 20230418
  Serious: No
  Sender: FDA-Public Use
  Company Number: None

PATIENT
  Age: 69 Year
  Sex: Female

DRUGS (1)
  1. COPAXONE [Suspect]
     Active Substance: GLATIRAMER ACETATE
     Dosage: OTHER FREQUENCY : 3 TIMES PER WEEK;?
     Route: 058
     Dates: start: 20200401

REACTIONS (3)
  - Accidental exposure to product [None]
  - Limb injury [None]
  - Swelling [None]

NARRATIVE: CASE EVENT DATE: 20230315
